FAERS Safety Report 6591359-8 (Version None)
Quarter: 2010Q1

REPORT INFORMATION
  Report Type: 
  Country: None (occurrence: None)
  Receive Date: 20100219
  Receipt Date: 20100208
  Transmission Date: 20100710
  Serious: Yes (Other)
  Sender: FDA-Public Use
  Company Number: US-WATSON-2010-01825

PATIENT
  Age: 39 Year
  Sex: Female

DRUGS (4)
  1. FLUOXETINE HCL [Suspect]
     Indication: DRUG USE FOR UNKNOWN INDICATION
     Dosage: 20 MG, DAILY
  2. AMANTADINE HCL [Suspect]
     Indication: TREMOR
     Dosage: 100 MG, DAILY
  3. AMANTADINE HCL [Suspect]
     Indication: FATIGUE
  4. TOPIRAMATE [Suspect]
     Indication: DRUG USE FOR UNKNOWN INDICATION
     Dosage: 50 MG, BID

REACTIONS (2)
  - CORNEAL OEDEMA [None]
  - VISUAL ACUITY REDUCED [None]
